FAERS Safety Report 7203824-0 (Version None)
Quarter: 2010Q4

REPORT INFORMATION
  Report Type: 
  Country: None (occurrence: None)
  Receive Date: 20101230
  Receipt Date: 20101221
  Transmission Date: 20110411
  Serious: Yes (Life-Threatening, Hospitalization)
  Sender: FDA-Public Use
  Company Number: AR-JNJFOC-20101204212

PATIENT
  Age: 52 Year
  Sex: Female
  Weight: 75 kg

DRUGS (7)
  1. GOLIMUMAB [Suspect]
     Indication: RHEUMATOID ARTHRITIS
     Route: 058
  2. GOLIMUMAB [Suspect]
     Route: 058
  3. METHOTREXATE [Suspect]
     Indication: RHEUMATOID ARTHRITIS
  4. LEFLUNOMIDE [Suspect]
     Indication: RHEUMATOID ARTHRITIS
  5. METHYLPREDNISOLONE [Suspect]
     Indication: RHEUMATOID ARTHRITIS
  6. FOLIC ACID [Concomitant]
     Indication: RHEUMATOID ARTHRITIS
  7. NAPROXEN [Concomitant]
     Indication: RHEUMATOID ARTHRITIS

REACTIONS (2)
  - ACUTE RESPIRATORY DISTRESS SYNDROME [None]
  - PNEUMONIA [None]
